FAERS Safety Report 10811866 (Version 2)
Quarter: 2015Q1

REPORT INFORMATION
  Report Type: Spontaneous
  Country: US (occurrence: US)
  Receive Date: 20150217
  Receipt Date: 20150224
  Transmission Date: 20150721
  Serious: No
  Sender: FDA-Public Use
  Company Number: US-009507513-1502USA007409

PATIENT
  Sex: Female

DRUGS (1)
  1. NEXPLANON [Suspect]
     Active Substance: ETONOGESTREL
     Indication: CONTRACEPTION
     Dosage: 68 MG/ONE ROD, INSERTED EVERY THREE YEARS
     Route: 059
     Dates: start: 20141028

REACTIONS (3)
  - Device expulsion [Unknown]
  - Implant site erythema [Unknown]
  - Implant site swelling [Unknown]

NARRATIVE: CASE EVENT DATE: 201411
